FAERS Safety Report 6494933-2 (Version None)
Quarter: 2009Q4

REPORT INFORMATION
  Report Type: 
  Country: None (occurrence: None)
  Receive Date: 20091214
  Receipt Date: 20090409
  Transmission Date: 20100525
  Serious: No
  Sender: FDA-Public Use
  Company Number: US-BRISTOL-MYERS SQUIBB COMPANY-14583132

PATIENT
  Age: 52 Year
  Sex: Female

DRUGS (2)
  1. ABILIFY [Suspect]
     Indication: BIPOLAR DISORDER
     Dosage: TAKEN 2MG, THEN INCREASED TO 10MG AND THEN DOSE REDUCED.
  2. LAMICTAL [Suspect]
     Indication: BIPOLAR DISORDER

REACTIONS (1)
  - TARDIVE DYSKINESIA [None]
